FAERS Safety Report 6273415-7 (Version None)
Quarter: 2009Q3

REPORT INFORMATION
  Report Type: 
  Country: None (occurrence: None)
  Receive Date: 20090720
  Receipt Date: 20090708
  Transmission Date: 20100115
  Serious: Yes (Hospitalization, Other)
  Sender: FDA-Public Use
  Company Number: PHHY2009IN28809

PATIENT
  Age: 34 Year
  Sex: Female
  Weight: 42 kg

DRUGS (8)
  1. CYCLOSPORINE [Suspect]
     Indication: RENAL TRANSPLANT
     Dosage: 160 MG, BID
  2. MYCOPHENOLATE MOFETIL [Concomitant]
     Indication: RENAL TRANSPLANT
     Dosage: 1 G, BID
  3. DACLIZUMAB [Concomitant]
  4. METHYLPREDNISOLONE [Concomitant]
     Indication: RENAL TRANSPLANT
     Dosage: 500 MG
  5. METHYLPREDNISOLONE [Concomitant]
     Dosage: 250 MG
  6. PREDNISOLONE [Concomitant]
     Indication: RENAL TRANSPLANT
     Dosage: 30 MG
     Route: 048
  7. BUPIVAINE [Concomitant]
     Dosage: 0.1%
     Route: 008
  8. FENTANYL-100 [Concomitant]
     Indication: ANALGESIA
     Dosage: 2 UG/ML, 3-7 ML/H

REACTIONS (8)
  - CEREBROSPINAL FISTULA [None]
  - DURAL TEAR [None]
  - GRAND MAL CONVULSION [None]
  - HEADACHE [None]
  - IMMUNOSUPPRESSANT DRUG LEVEL INCREASED [None]
  - INTRACRANIAL HYPOTENSION [None]
  - POLYURIA [None]
  - REVERSIBLE POSTERIOR LEUKOENCEPHALOPATHY SYNDROME [None]
